FAERS Safety Report 10373197 (Version 5)
Quarter: 2014Q3

REPORT INFORMATION
  Report Type: Spontaneous
  Country: US (occurrence: US)
  Receive Date: 20140808
  Receipt Date: 20140925
  Transmission Date: 20150326
  Serious: Yes (Hospitalization, Other)
  Sender: FDA-Public Use
  Company Number: US-BRISTOL-MYERS SQUIBB COMPANY-20169793

PATIENT
  Age: 66 Year
  Sex: Female

DRUGS (5)
  1. SPIRONOLACTONE. [Concomitant]
     Active Substance: SPIRONOLACTONE
  2. LASIX [Concomitant]
     Active Substance: FUROSEMIDE
  3. SPRYCEL [Suspect]
     Active Substance: DASATINIB
     Indication: CHRONIC MYELOID LEUKAEMIA
     Dosage: RED TO 50MG/3H65370C,3J75319D-EXP.30SEP16?TABLET
     Route: 048
     Dates: start: 20130927, end: 20140815
  4. BENAZEPRIL HCL [Suspect]
     Active Substance: BENAZEPRIL HYDROCHLORIDE
  5. METOLAZONE. [Concomitant]
     Active Substance: METOLAZONE

REACTIONS (6)
  - Renal disorder [Unknown]
  - Adverse event [Unknown]
  - Pleural effusion [Unknown]
  - Malignant neoplasm progression [Unknown]
  - Red blood cell count decreased [Unknown]
  - Dyspnoea [Unknown]
